FAERS Safety Report 25122115 (Version 1)
Quarter: 2025Q1

REPORT INFORMATION
  Report Type: Spontaneous
  Country: US (occurrence: US)
  Receive Date: 20250326
  Receipt Date: 20250326
  Transmission Date: 20250408
  Serious: Yes (Other)
  Sender: AMGEN
  Company Number: US-AMGEN-USASP2025056021

PATIENT
  Age: 79 Year
  Sex: Male

DRUGS (5)
  1. RITUXIMAB [Suspect]
     Active Substance: RITUXIMAB
     Indication: Muscular weakness
     Dosage: 800 MILLIGRAM, QWK, FOR 3 DOSES
     Route: 065
  2. PEMBROLIZUMAB [Concomitant]
     Active Substance: PEMBROLIZUMAB
  3. PYRIDOSTIGMINE [Concomitant]
     Active Substance: PYRIDOSTIGMINE
     Dosage: 60 MILLIGRAM, Q8H
  4. Immunoglobulin [Concomitant]
     Dosage: 400 MILLIGRAM/KILOGRAM, QD, FOR 5 DAYS
     Route: 040
  5. ABATACEPT [Concomitant]
     Active Substance: ABATACEPT

REACTIONS (5)
  - Liposarcoma metastatic [Unknown]
  - Cachexia [Unknown]
  - Dysphagia [Unknown]
  - Asthenia [Unknown]
  - Off label use [Unknown]
